FAERS Safety Report 6363054-1 (Version None)
Quarter: 2009Q3

REPORT INFORMATION
  Report Type: 
  Country: None (occurrence: None)
  Receive Date: 20090919
  Receipt Date: 20090616
  Transmission Date: 20100115
  Serious: No
  Sender: FDA-Public Use
  Company Number: US-ABBOTT-09P-163-0580023-00

PATIENT
  Sex: Female
  Weight: 65.83 kg

DRUGS (10)
  1. HUMIRA [Suspect]
     Indication: RHEUMATOID ARTHRITIS
     Route: 058
  2. IBUPROFEN [Concomitant]
     Indication: DRUG USE FOR UNKNOWN INDICATION
  3. LEXAPRO [Concomitant]
     Indication: NERVOUS SYSTEM DISORDER
  4. LEXAPRO [Concomitant]
     Indication: CENTRAL NERVOUS SYSTEM LESION
  5. TOPROL-XL [Concomitant]
     Indication: HYPERTENSION
  6. PREDNISONE [Concomitant]
     Indication: RHEUMATOID ARTHRITIS
  7. PLAVIX [Concomitant]
     Indication: CEREBROVASCULAR ACCIDENT
  8. PLAVIX [Concomitant]
     Indication: MYOCARDIAL INFARCTION
  9. SANCTURA [Concomitant]
     Indication: URINARY INCONTINENCE
  10. ACIPHEX [Concomitant]
     Indication: ULCER

REACTIONS (2)
  - DRUG DOSE OMISSION [None]
  - INCORRECT STORAGE OF DRUG [None]
